FAERS Safety Report 7002716-X (Version None)
Quarter: 2010Q3

REPORT INFORMATION
  Report Type: 
  Country: None (occurrence: None)
  Receive Date: 20100920
  Receipt Date: 20071102
  Transmission Date: 20110219
  Serious: Yes (Other)
  Sender: FDA-Public Use
  Company Number: US-ASTRAZENECA-2007UW13925

PATIENT
  Age: 53 Year
  Sex: Male
  Weight: 140.6 kg

DRUGS (11)
  1. SEROQUEL [Suspect]
     Indication: SLEEP DISORDER
     Route: 048
     Dates: start: 20050101
  2. SEROQUEL [Suspect]
     Indication: MENTAL DISORDER
     Route: 048
     Dates: start: 20050101
  3. SEROQUEL [Suspect]
     Dosage: 600 MG TO 800 MG
     Route: 048
     Dates: start: 20051201
  4. SEROQUEL [Suspect]
     Dosage: 600 MG TO 800 MG
     Route: 048
     Dates: start: 20051201
  5. METOPROLOL [Concomitant]
     Indication: CORONARY ARTERY DISEASE
     Dates: start: 20041007
  6. AVAPRO [Concomitant]
     Dates: start: 20050209
  7. LOVASTATIN [Concomitant]
     Indication: HYPERLIPIDAEMIA
     Route: 048
     Dates: start: 20050112
  8. PROZAC [Concomitant]
     Indication: ANXIETY
     Dosage: 20 MG - 60 MG, DAILY
     Route: 048
     Dates: start: 20041007
  9. PROZAC [Concomitant]
     Indication: POST-TRAUMATIC STRESS DISORDER
     Dosage: 20 MG - 60 MG, DAILY
     Route: 048
     Dates: start: 20041007
  10. PROZAC [Concomitant]
     Indication: DEPRESSION
     Dosage: 20 MG - 60 MG, DAILY
     Route: 048
     Dates: start: 20041007
  11. VALIUM [Concomitant]
     Dosage: 5 MG TO 10 MG
     Route: 048
     Dates: start: 19830505

REACTIONS (2)
  - DIABETES MELLITUS INADEQUATE CONTROL [None]
  - TYPE 2 DIABETES MELLITUS [None]
